FAERS Safety Report 9581802 (Version 1)
Quarter: 2013Q4

REPORT INFORMATION
  Report Type: Spontaneous
  Country: US (occurrence: US)
  Receive Date: 20131002
  Receipt Date: 20131002
  Transmission Date: 20140711
  Serious: No
  Sender: FDA-Public Use
  Company Number: US-B.I. PHARMACEUTICALS,INC./RIDGEFIELD-2013-BI-29837BP

PATIENT
  Age: 80 Year
  Sex: Male
  Weight: 91 kg

DRUGS (3)
  1. PRADAXA [Suspect]
     Indication: ATRIAL FIBRILLATION
     Dosage: 300 MG
     Route: 048
     Dates: start: 2011, end: 20130710
  2. LANOXIN [Concomitant]
     Indication: HYPERTENSION
     Route: 048
  3. CARDURA [Concomitant]
     Indication: HYPERTENSION
     Route: 048

REACTIONS (7)
  - Asthenia [Recovered/Resolved]
  - Gastrointestinal haemorrhage [Recovered/Resolved]
  - Gastric ulcer [Unknown]
  - Gait disturbance [Unknown]
  - Asthenia [Recovered/Resolved]
  - Helicobacter infection [Recovered/Resolved]
  - Large intestine polyp [Not Recovered/Not Resolved]
